FAERS Safety Report 7384939-3 (Version None)
Quarter: 2011Q1

REPORT INFORMATION
  Report Type: 
  Country: None (occurrence: None)
  Receive Date: 20110322
  Receipt Date: 20110307
  Transmission Date: 20110831
  Serious: Yes (Other)
  Sender: FDA-Public Use
  Company Number: AUR-APL-2011-00987

PATIENT
  Age: 80 Year
  Sex: Female

DRUGS (2)
  1. METFORMIN FILM-COATED TABLET [Suspect]
     Dosage: 500MG, DIALY
  2. XELEVIA [Concomitant]

REACTIONS (3)
  - NAUSEA [None]
  - WEIGHT DECREASED [None]
  - VOMITING [None]
